FAERS Safety Report 8308975-5 (Version None)
Quarter: 2012Q2

REPORT INFORMATION
  Report Type: 
  Country: None (occurrence: None)
  Receive Date: 20120424
  Receipt Date: 20120416
  Transmission Date: 20120825
  Serious: Yes (Hospitalization)
  Sender: FDA-Public Use
  Company Number: NL-MEDIMMUNE-MEDI-0015205

PATIENT
  Sex: Female
  Weight: 5.96 kg

DRUGS (2)
  1. SYNAGIS [Suspect]
     Indication: PREMATURE BABY
     Route: 030
     Dates: start: 20110926, end: 20120216
  2. SYNAGIS [Suspect]
     Route: 030
     Dates: start: 20120313, end: 20120313

REACTIONS (3)
  - VOMITING [None]
  - DEHYDRATION [None]
  - DIARRHOEA [None]
